FAERS Safety Report 10134191 (Version 1)
Quarter: 2014Q2

REPORT INFORMATION
  Report Type: Spontaneous
  Country: US (occurrence: US)
  Receive Date: 20140428
  Receipt Date: 20140428
  Transmission Date: 20141212
  Serious: No
  Sender: FDA-Public Use
  Company Number: US-SANOFI-AVENTIS-2013SA077168

PATIENT
  Sex: Female

DRUGS (2)
  1. ALLEGRA [Suspect]
     Dosage: PRODUCT START DATE:-3.5 WEEK AGO
     Route: 048
     Dates: end: 20130725
  2. DOXYCYCLINE [Suspect]
     Dosage: PRODUCT START DATE:-3.5 WEEK AGO
     Route: 065

REACTIONS (3)
  - Rash [Not Recovered/Not Resolved]
  - Erythema [Not Recovered/Not Resolved]
  - Swelling [Not Recovered/Not Resolved]
